FAERS Safety Report 20800629 (Version 1)
Quarter: 2022Q2

REPORT INFORMATION
  Report Type: Report from Study
  Country: US (occurrence: None)
  Receive Date: 20220509
  Receipt Date: 20220509
  Transmission Date: 20220720
  Serious: Yes (Hospitalization, Other)
  Sender: FDA-Public Use
  Company Number: US-Merck Healthcare KGaA-9274818

PATIENT
  Sex: Female
  Weight: 60 kg

DRUGS (1)
  1. REBIF [Suspect]
     Active Substance: INTERFERON BETA-1A
     Indication: Multiple sclerosis
     Route: 058
     Dates: start: 20030217

REACTIONS (3)
  - Pulmonary oedema [Unknown]
  - Chills [Unknown]
  - Multiple sclerosis [Unknown]
